FAERS Safety Report 14384339 (Version 1)
Quarter: 2018Q1

REPORT INFORMATION
  Report Type: Report from Study
  Country: US (occurrence: US)
  Receive Date: 20180115
  Receipt Date: 20180115
  Transmission Date: 20180509
  Serious: No
  Sender: FDA-Public Use
  Company Number: US-BIOVERATIV-2017BI00360421

PATIENT
  Sex: Male

DRUGS (1)
  1. ALPROLIX [Suspect]
     Active Substance: EFTRENONACOG ALFA
     Indication: FACTOR IX DEFICIENCY
     Route: 065

REACTIONS (5)
  - Arthropathy [Unknown]
  - Osteoarthritis [Unknown]
  - Joint injury [Unknown]
  - Computerised tomogram abnormal [Unknown]
  - Endoscopy [Unknown]
